FAERS Safety Report 7765461-9 (Version None)
Quarter: 2011Q3

REPORT INFORMATION
  Report Type: 
  Country: None (occurrence: None)
  Receive Date: 20110921
  Receipt Date: 20110915
  Transmission Date: 20111222
  Serious: Yes (Hospitalization, Other)
  Sender: FDA-Public Use
  Company Number: JP-PFIZER INC-2011201316

PATIENT
  Age: 30 Year
  Sex: Male
  Weight: 50 kg

DRUGS (5)
  1. CELECOXIB [Concomitant]
     Indication: PAIN IN EXTREMITY
     Dosage: 100 MG, 2X/DAY
     Route: 048
     Dates: start: 20110601, end: 20110901
  2. LYRICA [Suspect]
     Indication: NEURALGIA
     Dosage: 25 MG, 2X/DAY
     Route: 048
     Dates: start: 20110601, end: 20110818
  3. LYRICA [Suspect]
     Dosage: 75 MG, 2X/DAY
     Route: 048
     Dates: start: 20110826, end: 20110829
  4. TEGRETOL [Suspect]
     Indication: NEURALGIA
     Dosage: 200 MG, 1X/DAY
     Route: 048
     Dates: start: 20110601, end: 20110901
  5. METHYCOBAL [Concomitant]
     Indication: NEURALGIA
     Dosage: 500 UG, 3X/DAY
     Route: 048
     Dates: start: 20110601, end: 20110901

REACTIONS (2)
  - STEVENS-JOHNSON SYNDROME [None]
  - DRUG INEFFECTIVE [None]
